FAERS Safety Report 7322941-8 (Version None)
Quarter: 2011Q1

REPORT INFORMATION
  Report Type: 
  Country: None (occurrence: None)
  Receive Date: 20110301
  Receipt Date: 20110217
  Transmission Date: 20110831
  Serious: Yes (Hospitalization)
  Sender: FDA-Public Use
  Company Number: PHFR2011GB01396

PATIENT
  Sex: Female

DRUGS (2)
  1. CLOZARIL [Suspect]
     Indication: SCHIZOPHRENIA
     Dosage: UNK
     Route: 048
     Dates: start: 20110114
  2. CLOZARIL [Suspect]
     Dosage: UNK
     Dates: start: 20110222

REACTIONS (2)
  - HAEMATEMESIS [None]
  - GASTRIC HAEMORRHAGE [None]
